FAERS Safety Report 9510148 (Version 1)
Quarter: 2013Q3

REPORT INFORMATION
  Report Type: Spontaneous
  Country: US (occurrence: US)
  Receive Date: 20130909
  Receipt Date: 20130909
  Transmission Date: 20140515
  Serious: No
  Sender: FDA-Public Use
  Company Number: US-BRISTOL-MYERS SQUIBB COMPANY-18738252

PATIENT
  Age: 53 Year
  Sex: Female
  Weight: 68.03 kg

DRUGS (2)
  1. ABILIFY [Suspect]
     Indication: DEPRESSION
     Dosage: DOSE REDUCED TO 2MG,1YR AGO?STOPPED 5 DAYS BEFORE
  2. ZOLOFT [Suspect]
     Indication: DEPRESSION

REACTIONS (8)
  - Agitation [Unknown]
  - Anger [Unknown]
  - Aggression [Unknown]
  - Disturbance in attention [Unknown]
  - Abnormal dreams [Unknown]
  - Depression [Unknown]
  - Feeling of despair [Unknown]
  - Fear [Unknown]
